FAERS Safety Report 5691432-2 (Version None)
Quarter: 2008Q2

REPORT INFORMATION
  Report Type: 
  Country: None (occurrence: None)
  Receive Date: 20080401
  Receipt Date: 20080401
  Transmission Date: 20081010
  Serious: Yes (Hospitalization)
  Sender: FDA-Public Use
  Company Number: None

PATIENT
  Age: 79 Year
  Sex: Male

DRUGS (2)
  1. WARFARIN SODIUM [Suspect]
     Indication: ATRIAL FIBRILLATION
     Dosage: 3MG EVERY DAY PO
     Route: 048
     Dates: start: 19980401
  2. ASPIRIN [Suspect]
     Dosage: 81MG EVERY DAY PO
     Route: 048
     Dates: end: 20070926

REACTIONS (2)
  - ANAEMIA [None]
  - HAEMORRHAGE [None]
